FAERS Safety Report 9162599 (Version 1)
Quarter: 2013Q1

REPORT INFORMATION
  Report Type: Spontaneous
  Country: AR (occurrence: AR)
  Receive Date: 20130314
  Receipt Date: 20130314
  Transmission Date: 20140127
  Serious: Yes (Other)
  Sender: FDA-Public Use
  Company Number: AR-BAYER-2012-068868

PATIENT
  Age: 32 Year
  Sex: Female
  Weight: 61 kg

DRUGS (1)
  1. MIRENA [Suspect]
     Indication: CONTRACEPTION
     Dosage: 20 MCG/24HR, CONT
     Route: 015
     Dates: start: 201103, end: 20130128

REACTIONS (5)
  - Pregnancy with contraceptive device [Recovered/Resolved]
  - Amenorrhoea [None]
  - Drug ineffective [None]
  - Device dislocation [Recovered/Resolved]
  - Caesarean section [None]
